FAERS Safety Report 9147812 (Version 1)
Quarter: 2013Q1

REPORT INFORMATION
  Report Type: Spontaneous
  Country: FR (occurrence: FR)
  Receive Date: 20130307
  Receipt Date: 20130307
  Transmission Date: 20140127
  Serious: Yes (Other)
  Sender: FDA-Public Use
  Company Number: FR-PFIZER INC-2013075956

PATIENT
  Age: 25 Year
  Sex: Male

DRUGS (4)
  1. XANAX [Suspect]
     Dosage: UNK
     Dates: start: 200509
  2. PARACETAMOL [Suspect]
     Dosage: UNK
     Dates: start: 200509
  3. ZINNAT [Suspect]
     Dosage: UNK
     Dates: start: 200509
  4. RHINUREFLEX [Suspect]
     Dosage: UNK
     Dates: start: 200509

REACTIONS (1)
  - Toxicity to various agents [Unknown]
